FAERS Safety Report 9028780 (Version 1)
Quarter: 2013Q1

REPORT INFORMATION
  Report Type: Spontaneous
  Country: US (occurrence: US)
  Receive Date: 20130124
  Receipt Date: 20130124
  Transmission Date: 20140127
  Serious: No
  Sender: FDA-Public Use
  Company Number: US-BAUSCH-2012BL000963

PATIENT
  Sex: Female

DRUGS (3)
  1. ALAWAY [Suspect]
     Indication: PROPHYLAXIS
     Route: 047
     Dates: start: 201201, end: 20120210
  2. ALAWAY [Suspect]
     Indication: OFF LABEL USE
  3. ALLERGAN REWETTING DROPS [Concomitant]

REACTIONS (3)
  - Abnormal sensation in eye [Recovered/Resolved]
  - Ocular discomfort [Recovered/Resolved]
  - Eye pruritus [Recovered/Resolved]
